FAERS Safety Report 6824237-7 (Version None)
Quarter: 2010Q3

REPORT INFORMATION
  Report Type: 
  Country: None (occurrence: None)
  Receive Date: 20100708
  Receipt Date: 20070317
  Transmission Date: 20110219
  Serious: No
  Sender: FDA-Public Use
  Company Number: US-PFIZER INC-2006116113

PATIENT
  Sex: Female
  Weight: 65.77 kg

DRUGS (19)
  1. CHANTIX [Suspect]
     Indication: SMOKING CESSATION THERAPY
     Route: 048
     Dates: start: 20060916, end: 20060923
  2. FOLIC ACID [Concomitant]
     Route: 048
  3. POTASSIUM CHLORIDE [Concomitant]
     Route: 048
  4. UNITHROID [Concomitant]
     Route: 048
  5. MULTIPLE VITAMINS [Concomitant]
     Route: 048
  6. FLUPHENAZINE [Concomitant]
     Route: 048
  7. GABAPENTIN [Concomitant]
     Route: 048
  8. LORAZEPAM [Concomitant]
     Route: 048
  9. MAGNESIUM [Concomitant]
     Route: 048
  10. FUROSEMIDE [Concomitant]
     Route: 048
  11. NASONEX [Concomitant]
     Route: 048
  12. PREMARIN [Concomitant]
     Route: 048
  13. CRESTOR [Concomitant]
     Route: 048
  14. ZYRTEC [Concomitant]
     Route: 048
  15. CHLORDIAZEPOXIDE [Concomitant]
     Route: 048
  16. ACETYLSALICYLIC ACID [Concomitant]
     Route: 048
  17. COQ-10 ST [Concomitant]
     Route: 048
  18. ZOLOFT [Concomitant]
     Route: 048
  19. FISH OIL [Concomitant]
     Route: 048

REACTIONS (3)
  - CRYING [None]
  - DEPRESSION [None]
  - NASOPHARYNGITIS [None]
